FAERS Safety Report 12573273 (Version 1)
Quarter: 2016Q3

REPORT INFORMATION
  Report Type: Spontaneous
  Country: US (occurrence: None)
  Receive Date: 20160719
  Receipt Date: 20160719
  Transmission Date: 20161109
  Serious: Yes (Hospitalization)
  Sender: FDA-Public Use
  Company Number: None

PATIENT
  Age: 27 Year
  Sex: Male

DRUGS (10)
  1. PULMOZYME [Concomitant]
     Active Substance: DORNASE ALFA
  2. AQAUDEKS [Concomitant]
  3. CLARINEX [Concomitant]
     Active Substance: DESLORATADINE
  4. ADVAIR HFA [Concomitant]
     Active Substance: FLUTICASONE PROPIONATE\SALMETEROL XINAFOATE
  5. TOBRAMYCIN 300MG AKORN [Suspect]
     Active Substance: TOBRAMYCIN
     Indication: CYSTIC FIBROSIS
     Dosage: 300MG BID NEB
     Dates: start: 20130503
  6. ALBUTEROL. [Concomitant]
     Active Substance: ALBUTEROL
  7. CALTRATE [Concomitant]
     Active Substance: CALCIUM CARBONATE
  8. BACLOFEN. [Concomitant]
     Active Substance: BACLOFEN
  9. VITAMIN A [Concomitant]
     Active Substance: VITAMIN A
  10. NEXIUM [Concomitant]
     Active Substance: ESOMEPRAZOLE MAGNESIUM

REACTIONS (1)
  - Hospitalisation [None]
